FAERS Safety Report 24394939 (Version 1)
Quarter: 2024Q4

REPORT INFORMATION
  Report Type: Spontaneous
  Country: US (occurrence: US)
  Receive Date: 20241004
  Receipt Date: 20241004
  Transmission Date: 20250115
  Serious: No
  Sender: ZYDUS PHARM
  Company Number: US-CADILA HEALTHCARE LIMITED-US-ZYDUS-108639

PATIENT

DRUGS (1)
  1. ETHINYL ESTRADIOL\NORELGESTROMIN [Suspect]
     Active Substance: ETHINYL ESTRADIOL\NORELGESTROMIN
     Indication: Contraception
     Dosage: ONE PATCH TO SKIN ONCE A WEEK FOR THREE WEEKS AND ONE WEEK PATCH FREE.
     Route: 062
     Dates: start: 202402, end: 202407

REACTIONS (4)
  - Product adhesion issue [Recovered/Resolved]
  - Application site bruise [Not Recovered/Not Resolved]
  - Product substitution issue [Recovered/Resolved]
  - Rash [Not Recovered/Not Resolved]

NARRATIVE: CASE EVENT DATE: 20240101
